FAERS Safety Report 24987216 (Version 1)
Quarter: 2025Q1

REPORT INFORMATION
  Report Type: Spontaneous
  Country: US (occurrence: None)
  Receive Date: 20250219
  Receipt Date: 20250219
  Transmission Date: 20250409
  Serious: Yes (Life-Threatening, Hospitalization)
  Sender: FDA-CTU
  Company Number: None

PATIENT
  Age: 29 Year
  Sex: Female
  Weight: 90 kg

DRUGS (2)
  1. INAPSINE [Suspect]
     Active Substance: DROPERIDOL
     Indication: Migraine
     Route: 042
     Dates: start: 20230309, end: 20230309
  2. PROPRANOLOL [Suspect]
     Active Substance: PROPRANOLOL HYDROCHLORIDE

REACTIONS (6)
  - Migraine [None]
  - Dizziness [None]
  - Anxiety [None]
  - Akathisia [None]
  - Muscle spasms [None]
  - Morbid thoughts [None]

NARRATIVE: CASE EVENT DATE: 20230309
